FAERS Safety Report 10194841 (Version 1)
Quarter: 2014Q2

REPORT INFORMATION
  Report Type: Spontaneous
  Country: US (occurrence: US)
  Receive Date: 20140526
  Receipt Date: 20140526
  Transmission Date: 20141212
  Serious: Yes (Other)
  Sender: FDA-Public Use
  Company Number: US-PFIZER INC-2014141117

PATIENT
  Age: 37 Year
  Sex: Male
  Weight: 131 kg

DRUGS (1)
  1. LYRICA [Suspect]
     Indication: DIABETIC NEUROPATHY
     Dosage: 100 MG, 3X/DAY
     Dates: start: 201305

REACTIONS (4)
  - Pancreatitis [Unknown]
  - Platelet count decreased [Unknown]
  - Blood triglycerides increased [Unknown]
  - Lipids increased [Unknown]
